FAERS Safety Report 8163559-7 (Version None)
Quarter: 2012Q1

REPORT INFORMATION
  Report Type: 
  Country: None (occurrence: None)
  Receive Date: 20120224
  Receipt Date: 20120216
  Transmission Date: 20120608
  Serious: Yes (Other)
  Sender: FDA-Public Use
  Company Number: US-JNJFOC-20120208846

PATIENT
  Sex: Male
  Weight: 87.09 kg

DRUGS (9)
  1. SERTRALINE HYDROCHLORIDE [Concomitant]
     Indication: ANXIETY
     Route: 048
  2. MULTAQ [Concomitant]
     Indication: HYPERTENSION
     Route: 048
     Dates: start: 20110101
  3. METOPROLOL TARTRATE [Concomitant]
     Indication: HYPERTENSION
     Route: 048
     Dates: start: 20110701
  4. PREDNISONE [Concomitant]
     Indication: CHRONIC LYMPHOCYTIC LEUKAEMIA
     Route: 048
     Dates: start: 20110601
  5. XARELTO [Suspect]
     Indication: ATRIAL FIBRILLATION
     Route: 048
     Dates: start: 20120101
  6. PROTONIX [Concomitant]
     Indication: PROPHYLAXIS
     Route: 048
     Dates: start: 20110101
  7. VITAMIN D [Concomitant]
     Indication: VITAMIN SUPPLEMENTATION
     Route: 048
  8. OXYGEN [Concomitant]
     Dates: start: 20110601
  9. MUTIVITAMINS [Concomitant]
     Indication: VITAMIN SUPPLEMENTATION
     Route: 048

REACTIONS (7)
  - SINUSITIS [None]
  - BACK PAIN [None]
  - BODY HEIGHT DECREASED [None]
  - COUGH [None]
  - SPINAL FRACTURE [None]
  - MOBILITY DECREASED [None]
  - INAPPROPRIATE SCHEDULE OF DRUG ADMINISTRATION [None]
